FAERS Safety Report 7935616-9 (Version None)
Quarter: 2011Q4

REPORT INFORMATION
  Report Type: 
  Country: None (occurrence: None)
  Receive Date: 20111123
  Receipt Date: 20111111
  Transmission Date: 20120403
  Serious: Yes (Other)
  Sender: FDA-Public Use
  Company Number: AT-ELI_LILLY_AND_COMPANY-AT201111004152

PATIENT
  Age: 15 Year
  Sex: Male
  Weight: 70 kg

DRUGS (1)
  1. ATOMOXETINE HCL [Suspect]
     Dosage: 80 MG, UNK
     Dates: end: 20111111

REACTIONS (2)
  - DRUG LEVEL INCREASED [None]
  - HYPERTENSION [None]
